FAERS Safety Report 25597668 (Version 1)
Quarter: 2025Q3

REPORT INFORMATION
  Report Type: Spontaneous
  Country: US (occurrence: None)
  Receive Date: 20250723
  Receipt Date: 20250723
  Transmission Date: 20251020
  Serious: Yes (Death)
  Sender: FDA-CTU
  Company Number: None

PATIENT
  Age: 73 Year
  Sex: Female

DRUGS (1)
  1. MIRCERA [Suspect]
     Active Substance: METHOXY POLYETHYLENE GLYCOL-EPOETIN BETA
     Indication: Anaemia
     Route: 042
     Dates: start: 20190801, end: 20200201

REACTIONS (4)
  - Therapy change [None]
  - Inappropriate schedule of product administration [None]
  - Serum ferritin increased [None]
  - Cardiac arrest [None]

NARRATIVE: CASE EVENT DATE: 20190801
